FAERS Safety Report 4512139-0 (Version None)
Quarter: 2004Q4

REPORT INFORMATION
  Report Type: 
  Country: None (occurrence: None)
  Receive Date: 20041129
  Receipt Date: 20040206
  Transmission Date: 20050328
  Serious: No
  Sender: FDA-Public Use
  Company Number: US-GLAXOSMITHKLINE-A0497090A

PATIENT
  Age: 59 Year
  Sex: Female

DRUGS (9)
  1. LANOXIN [Suspect]
     Indication: CARDIAC FAILURE
     Dosage: 125MCG PER DAY
     Route: 048
     Dates: start: 20031223
  2. COUMADIN [Concomitant]
  3. BUSPAR [Concomitant]
  4. SPIRONOLACTONE [Concomitant]
  5. PRINIVIL [Concomitant]
  6. ATENOLOL [Concomitant]
  7. BACTRIM [Concomitant]
  8. SYNTHROID [Concomitant]
  9. MULTI-VITAMIN [Concomitant]

REACTIONS (1)
  - CARDIOACTIVE DRUG LEVEL DECREASED [None]
